FAERS Safety Report 5515827-2 (Version None)
Quarter: 2007Q4

REPORT INFORMATION
  Report Type: 
  Country: None (occurrence: None)
  Receive Date: 20071114
  Receipt Date: 20071101
  Transmission Date: 20080405
  Serious: Yes (Hospitalization, Other)
  Sender: FDA-Public Use
  Company Number: GB-BRISTOL-MYERS SQUIBB COMPANY-13977970

PATIENT
  Age: 66 Year
  Sex: Male

DRUGS (4)
  1. CYCLOPHOSPHAMIDE [Suspect]
     Indication: CHEMOTHERAPY
     Route: 042
  2. FLUDARA [Suspect]
     Indication: CHEMOTHERAPY
     Route: 042
  3. NEUPOGEN [Concomitant]
  4. SUNITINIB MALATE [Concomitant]

REACTIONS (6)
  - ANAEMIA [None]
  - BRONCHOPULMONARY ASPERGILLOSIS [None]
  - LYMPHOPENIA [None]
  - METASTASES TO LUNG [None]
  - NEUTROPENIA [None]
  - THROMBOCYTOPENIA [None]
